FAERS Safety Report 11068184 (Version 2)
Quarter: 2019Q2

REPORT INFORMATION
  Report Type: Spontaneous
  Country: US (occurrence: US)
  Receive Date: 20150427
  Receipt Date: 20190614
  Transmission Date: 20190711
  Serious: No
  Sender: FDA-Public Use
  Company Number: US-JNJFOC-20150409588

PATIENT
  Sex: Male
  Weight: 90.72 kg

DRUGS (2)
  1. RISPERDAL [Suspect]
     Active Substance: RISPERIDONE
     Indication: SCHIZOPHRENIA
     Route: 048
     Dates: start: 2004, end: 2006
  2. GEODON [Concomitant]
     Active Substance: ZIPRASIDONE HYDROCHLORIDE\ZIPRASIDONE MESYLATE
     Route: 065
     Dates: start: 2003, end: 2004

REACTIONS (5)
  - Gynaecomastia [Unknown]
  - Pyrexia [Unknown]
  - Abnormal weight gain [Unknown]
  - Hyperglycaemia [Unknown]
  - Malaise [Unknown]

NARRATIVE: CASE EVENT DATE: 2004
